FAERS Safety Report 6143664-7 (Version None)
Quarter: 2009Q2

REPORT INFORMATION
  Report Type: 
  Country: None (occurrence: None)
  Receive Date: 20090403
  Receipt Date: 20090324
  Transmission Date: 20091009
  Serious: Yes (Hospitalization)
  Sender: FDA-Public Use
  Company Number: FR-EISAI MEDIAL RESEARCH-E3810-02681-SPO-FR

PATIENT
  Age: 70 Year
  Sex: Female

DRUGS (5)
  1. PARIET (RABEPRAZOLE) [Suspect]
     Dosage: UNKNOWN
     Route: 048
     Dates: start: 20081216, end: 20090201
  2. MYOLASTAN [Suspect]
     Dates: start: 20090119, end: 20090201
  3. LEXOMIL ROCHE [Suspect]
     Dates: start: 20090102, end: 20090201
  4. LEVETIRACETAM [Concomitant]
     Dates: start: 20081216
  5. FERROUS SULFATE TAB [Concomitant]

REACTIONS (3)
  - CYTOLYTIC HEPATITIS [None]
  - NEUTROPENIA [None]
  - SYSTEMIC LUPUS ERYTHEMATOSUS [None]
